FAERS Safety Report 9963411 (Version 2)
Quarter: 2014Q2

REPORT INFORMATION
  Report Type: Report from Study
  Country: JP (occurrence: JP)
  Receive Date: 20140305
  Receipt Date: 20140506
  Transmission Date: 20141212
  Serious: Yes (Hospitalization)
  Sender: FDA-Public Use
  Company Number: JP-UCBSA-113852

PATIENT
  Age: 60 Year
  Sex: Female
  Weight: 50 kg

DRUGS (3)
  1. CIMZIA [Suspect]
     Indication: RHEUMATOID ARTHRITIS
     Dosage: STRENGTH: 200MG SYRINGE
     Route: 058
     Dates: start: 20130625, end: 20130723
  2. CIMZIA [Suspect]
     Indication: RHEUMATOID ARTHRITIS
     Route: 058
     Dates: start: 20130806, end: 20130917
  3. RHEUMATREX [Concomitant]
     Route: 048

REACTIONS (1)
  - Decubitus ulcer [Recovering/Resolving]
